FAERS Safety Report 6629899-5 (Version None)
Quarter: 2010Q1

REPORT INFORMATION
  Report Type: 
  Country: None (occurrence: None)
  Receive Date: 20100311
  Receipt Date: 20090709
  Transmission Date: 20100710
  Serious: No
  Sender: FDA-Public Use
  Company Number: US-BIOGENIDEC-2009BI021019

PATIENT
  Age: 22 Year
  Sex: Female

DRUGS (2)
  1. AVONEX [Suspect]
     Indication: MULTIPLE SCLEROSIS
     Route: 030
     Dates: start: 20090616, end: 20090616
  2. AVONEX [Suspect]
     Route: 030
     Dates: start: 20090707

REACTIONS (6)
  - ARTHRALGIA [None]
  - BURNING SENSATION [None]
  - FEELING HOT [None]
  - HEADACHE [None]
  - HYPERHIDROSIS [None]
  - MUSCULOSKELETAL STIFFNESS [None]
